FAERS Safety Report 5226082-5 (Version None)
Quarter: 2007Q1

REPORT INFORMATION
  Report Type: 
  Country: None (occurrence: None)
  Receive Date: 20070129
  Receipt Date: 20070115
  Transmission Date: 20070707
  Serious: No
  Sender: FDA-Public Use
  Company Number: 2006BI018576

PATIENT
  Sex: Female

DRUGS (2)
  1. AVONEX [Suspect]
     Indication: DRUG USE FOR UNKNOWN INDICATION
     Dosage: 30 UG;QW;IM
     Route: 030
     Dates: start: 20060418
  2. METHADONE HCL [Concomitant]

REACTIONS (3)
  - BLINDNESS [None]
  - NEOPLASM MALIGNANT [None]
  - SURGERY [None]
